FAERS Safety Report 14896403 (Version 2)
Quarter: 2018Q3

REPORT INFORMATION
  Report Type: Spontaneous
  Country: US (occurrence: US)
  Receive Date: 20180515
  Receipt Date: 20180907
  Transmission Date: 20181010
  Serious: Yes (Other)
  Sender: FDA-Public Use
  Company Number: US-BAYER-2018-090324

PATIENT
  Sex: Female
  Weight: 62.14 kg

DRUGS (1)
  1. KYLEENA [Suspect]
     Active Substance: LEVONORGESTREL
     Indication: INTRA-UTERINE CONTRACEPTIVE DEVICE INSERTION
     Dosage: 17.5 MCG/24HR, CONT
     Route: 015
     Dates: start: 20170831, end: 20180430

REACTIONS (5)
  - Dyspareunia [None]
  - Genital haemorrhage [None]
  - Abdominal pain lower [None]
  - Coital bleeding [None]
  - Procedural pain [None]
